FAERS Safety Report 10615160 (Version 1)
Quarter: 2014Q4

REPORT INFORMATION
  Report Type: Spontaneous
  Country: US (occurrence: None)
  Receive Date: 20141125
  Receipt Date: 20141125
  Transmission Date: 20150529
  Serious: Yes (Death, Hospitalization)
  Sender: FDA-Public Use
  Company Number: None

PATIENT
  Age: 76 Year
  Sex: Female
  Weight: 60 kg

DRUGS (1)
  1. XARELTO [Suspect]
     Active Substance: RIVAROXABAN
     Indication: ATRIAL FIBRILLATION
     Dosage: 20 MG, QHS/BEDTIME, ORAL
     Route: 048
     Dates: start: 20140718, end: 20141117

REACTIONS (6)
  - Pain [None]
  - Coagulopathy [None]
  - Haematocrit decreased [None]
  - Hypotension [None]
  - Haemoglobin decreased [None]
  - Constipation [None]

NARRATIVE: CASE EVENT DATE: 20141118
